FAERS Safety Report 5401039-X (Version None)
Quarter: 2007Q3

REPORT INFORMATION
  Report Type: 
  Country: None (occurrence: None)
  Receive Date: 20070712
  Receipt Date: 20070628
  Transmission Date: 20080115
  Serious: Yes (Other)
  Sender: FDA-Public Use
  Company Number: THYM-11476

PATIENT

DRUGS (1)
  1. THYMOGLOBULIN [Suspect]
     Indication: TRANSPLANT REJECTION

REACTIONS (3)
  - ARTHRALGIA [None]
  - PAIN IN JAW [None]
  - SERUM SICKNESS [None]
